FAERS Safety Report 6219172-1 (Version None)
Quarter: 2009Q2

REPORT INFORMATION
  Report Type: 
  Country: None (occurrence: None)
  Receive Date: 20090605
  Receipt Date: 20090605
  Transmission Date: 20091009
  Serious: No
  Sender: FDA-Public Use
  Company Number: None

PATIENT
  Age: 58 Year
  Sex: Male
  Weight: 86.637 kg

DRUGS (1)
  1. VITAMIN D [Suspect]

REACTIONS (4)
  - BLOOD CALCIUM INCREASED [None]
  - BLOOD CREATININE INCREASED [None]
  - OVERDOSE [None]
  - THERAPEUTIC AGENT TOXICITY [None]
